FAERS Safety Report 7555052-7 (Version None)
Quarter: 2011Q2

REPORT INFORMATION
  Report Type: 
  Country: None (occurrence: None)
  Receive Date: 20110610
  Receipt Date: 20110530
  Transmission Date: 20111010
  Serious: Yes (Hospitalization, Other)
  Sender: FDA-Public Use
  Company Number: 1000021152

PATIENT
  Age: 34 Year
  Sex: Female
  Weight: 130 kg

DRUGS (3)
  1. DOXEPIN [Suspect]
     Dosage: (2000 MG, ONCE), ORAL
     Route: 048
     Dates: start: 20110522, end: 20110522
  2. CITALOPRAM HYDROBROMIDE [Suspect]
     Dosage: (380 MG, ONCE), ORAL
     Route: 048
     Dates: start: 20110522, end: 20110522
  3. CODEIN (CODEINE PHOSPHATE) [Suspect]
     Dosage: (10 MG, ONCE), ORAL
     Route: 048
     Dates: start: 20110522, end: 20110522

REACTIONS (5)
  - SUICIDE ATTEMPT [None]
  - FATIGUE [None]
  - ELECTROCARDIOGRAM QRS COMPLEX PROLONGED [None]
  - MULTIPLE DRUG OVERDOSE INTENTIONAL [None]
  - TACHYCARDIA [None]
